FAERS Safety Report 4870257-1 (Version None)
Quarter: 2006Q1

REPORT INFORMATION
  Report Type: 
  Country: None (occurrence: None)
  Receive Date: 20060102
  Receipt Date: 20051221
  Transmission Date: 20060701
  Serious: Yes (Death, Other)
  Sender: FDA-Public Use
  Company Number: KR-SANOFI-SYNTHELABO-A01200508912

PATIENT
  Sex: Male
  Weight: 75 kg

DRUGS (4)
  1. PLAVIX [Suspect]
     Indication: THROMBOSIS
     Route: 048
     Dates: start: 20050104, end: 20050928
  2. ASPIRIN [Concomitant]
     Indication: THROMBOSIS
     Route: 048
     Dates: start: 20050504, end: 20050928
  3. DILTIAZEM HCL [Concomitant]
     Indication: HYPERTENSION
     Route: 048
     Dates: start: 20050301, end: 20050928
  4. AMIODARONE [Concomitant]
     Indication: ARRHYTHMIA
     Route: 048
     Dates: start: 20050501, end: 20050928

REACTIONS (3)
  - CEREBROVASCULAR ACCIDENT [None]
  - SUDDEN DEATH [None]
  - SYNCOPE [None]
